FAERS Safety Report 16541313 (Version 1)
Quarter: 2019Q3

REPORT INFORMATION
  Report Type: Spontaneous
  Country: US (occurrence: US)
  Receive Date: 20190708
  Receipt Date: 20190708
  Transmission Date: 20191004
  Serious: No
  Sender: FDA-Public Use
  Company Number: US-GLAXOSMITHKLINE-US2019119250

PATIENT
  Age: 60 Year
  Sex: Male

DRUGS (1)
  1. ABREVA [Suspect]
     Active Substance: DOCOSANOL
     Indication: ORAL HERPES
     Dosage: UNK
     Dates: start: 20190612, end: 20190621

REACTIONS (4)
  - Application site haemorrhage [Unknown]
  - Condition aggravated [Unknown]
  - Oral herpes [Unknown]
  - Application site rash [Unknown]

NARRATIVE: CASE EVENT DATE: 20190612
